FAERS Safety Report 9457780 (Version 2)
Quarter: 2013Q3

REPORT INFORMATION
  Report Type: Report from Study
  Country: US (occurrence: US)
  Receive Date: 20130814
  Receipt Date: 20130815
  Transmission Date: 20140515
  Serious: Yes (Other)
  Sender: FDA-Public Use
  Company Number: PHEH2013US017081

PATIENT
  Sex: Male

DRUGS (3)
  1. EXJADE [Suspect]
     Indication: HEREDITARY STOMATOCYTOSIS
     Dosage: 750 MG, QD
     Route: 048
  2. EXJADE [Suspect]
     Dosage: 1250 MG, QD
     Route: 048
     Dates: start: 2011, end: 201206
  3. EXJADE [Suspect]
     Dosage: 1250 MG, QD
     Route: 048
     Dates: start: 201302

REACTIONS (1)
  - Glaucoma [Unknown]
